FAERS Safety Report 25733331 (Version 1)
Quarter: 2025Q3

REPORT INFORMATION
  Report Type: Spontaneous
  Country: US (occurrence: US)
  Receive Date: 20250828
  Receipt Date: 20250828
  Transmission Date: 20251021
  Serious: No
  Sender: ROCHE
  Company Number: US-ROCHE-10000370966

PATIENT
  Age: 55 Year
  Sex: Female
  Weight: 57.15 kg

DRUGS (8)
  1. KADCYLA [Suspect]
     Active Substance: ADO-TRASTUZUMAB EMTANSINE
     Indication: Breast cancer metastatic
     Dosage: CHEMO CHEST PORT?THREE CYCLES ON (JUNE 18, JULY 7, AND JULY 29) 2025
     Route: 065
     Dates: start: 20250618
  2. PERJETA [Suspect]
     Active Substance: PERTUZUMAB
     Indication: Breast cancer metastatic
     Route: 065
     Dates: start: 20250124, end: 20250508
  3. OGIVRI [Suspect]
     Active Substance: TRASTUZUMAB-DKST
     Indication: Breast cancer metastatic
     Route: 065
     Dates: start: 20250124, end: 20250508
  4. TAXOL [Suspect]
     Active Substance: PACLITAXEL
     Indication: Breast cancer metastatic
     Route: 065
     Dates: start: 20250124, end: 20250508
  5. CARBOPLATIN [Suspect]
     Active Substance: CARBOPLATIN
     Indication: Breast cancer metastatic
     Route: 065
     Dates: start: 20250124, end: 20250508
  6. AMLODIPINE [Concomitant]
     Active Substance: AMLODIPINE BESYLATE
     Indication: Hypertension
     Route: 048
     Dates: start: 2008
  7. UNISOM SLEEPTABS [Concomitant]
     Active Substance: DOXYLAMINE SUCCINATE
     Indication: Insomnia
     Dosage: NIGHT
     Route: 048
     Dates: start: 202501
  8. MELATONIN [Concomitant]
     Active Substance: MELATONIN
     Indication: Insomnia
     Dosage: NIGHT
     Route: 048
     Dates: start: 2017

REACTIONS (5)
  - Myalgia [Not Recovered/Not Resolved]
  - Muscle spasms [Not Recovered/Not Resolved]
  - Hyperchlorhydria [Not Recovered/Not Resolved]
  - Arthralgia [Not Recovered/Not Resolved]
  - Eructation [Not Recovered/Not Resolved]

NARRATIVE: CASE EVENT DATE: 20250701
